FAERS Safety Report 5634557-X (Version None)
Quarter: 2008Q1

REPORT INFORMATION
  Report Type: 
  Country: None (occurrence: None)
  Receive Date: 20080222
  Receipt Date: 20080213
  Transmission Date: 20080703
  Serious: Yes (Hospitalization)
  Sender: FDA-Public Use
  Company Number: PHBS2007JP20993

PATIENT
  Age: 39 Year
  Sex: Female

DRUGS (8)
  1. VOLTAREN [Suspect]
     Indication: PYREXIA
     Dosage: UNK, UNK
     Route: 054
     Dates: start: 20071120, end: 20071126
  2. PL GRAN. [Concomitant]
  3. LOXONIN [Concomitant]
  4. MUCOSTA [Concomitant]
  5. FIRSTCIN [Concomitant]
     Dosage: 2 G
     Dates: start: 20071130, end: 20071208
  6. CRAVIT [Concomitant]
     Dosage: 400 MG
     Route: 048
     Dates: start: 20071209
  7. BIOFERMIN [Concomitant]
     Dosage: 6 G
     Route: 048
  8. PARIET [Concomitant]
     Dosage: 10 MG
     Route: 048

REACTIONS (29)
  - ABDOMINAL DISTENSION [None]
  - ABDOMINAL PAIN LOWER [None]
  - ANAEMIA [None]
  - ASCITES [None]
  - BLOOD ALKALINE PHOSPHATASE INCREASED [None]
  - BLOOD IMMUNOGLOBULIN G INCREASED [None]
  - C-REACTIVE PROTEIN INCREASED [None]
  - CARDIOLIPIN ANTIBODY [None]
  - CHEST PAIN [None]
  - COLITIS [None]
  - COMPLEMENT FACTOR DECREASED [None]
  - COUGH [None]
  - DIARRHOEA [None]
  - GASTRITIS EROSIVE [None]
  - GASTROINTESTINAL DISORDER [None]
  - GENERALISED OEDEMA [None]
  - HAEMATOCRIT DECREASED [None]
  - HAEMOGLOBIN DECREASED [None]
  - HYPOALBUMINAEMIA [None]
  - OEDEMA PERIPHERAL [None]
  - PLEURAL EFFUSION [None]
  - PLEURISY [None]
  - PROTEIN URINE PRESENT [None]
  - PYREXIA [None]
  - SERUM FERRITIN INCREASED [None]
  - SYSTEMIC LUPUS ERYTHEMATOSUS [None]
  - URINE OUTPUT DECREASED [None]
  - WEIGHT INCREASED [None]
  - WHITE BLOOD CELL COUNT INCREASED [None]
